FAERS Safety Report 6041700-X (Version None)
Quarter: 2009Q1

REPORT INFORMATION
  Report Type: 
  Country: None (occurrence: None)
  Receive Date: 20090116
  Receipt Date: 20081203
  Transmission Date: 20090719
  Serious: Yes (Hospitalization)
  Sender: FDA-Public Use
  Company Number: US-BRISTOL-MYERS SQUIBB COMPANY-14347652

PATIENT
  Age: 66 Year
  Sex: Female
  Weight: 81 kg

DRUGS (6)
  1. ABILIFY [Suspect]
     Indication: BIPOLAR DISORDER
     Dosage: INITIAL DOSE 5 MG ON 02AUG08,THEN INCREASED TO 10MG  THEN 15 MG.REDUCED TO 10 MG QD
     Dates: start: 20080802
  2. LITHIUM [Concomitant]
  3. PREMARIN [Concomitant]
  4. MULTI-VITAMIN [Concomitant]
  5. LORAZEPAM [Concomitant]
     Dosage: AT NIGHT.
  6. ONE-A-DAY [Concomitant]

REACTIONS (6)
  - DIZZINESS [None]
  - EXOSTOSIS [None]
  - MASKED FACIES [None]
  - MYALGIA [None]
  - NERVOUSNESS [None]
  - SALIVARY HYPERSECRETION [None]
